FAERS Safety Report 20458138 (Version 3)
Quarter: 2022Q3

REPORT INFORMATION
  Report Type: Report from Study
  Country: CA (occurrence: CA)
  Receive Date: 20220211
  Receipt Date: 20220808
  Transmission Date: 20221026
  Serious: Yes (Hospitalization, Other)
  Sender: FDA-Public Use
  Company Number: CA-ABBVIE-22K-028-4273952-00

PATIENT
  Age: 71 Year
  Sex: Male

DRUGS (3)
  1. RINVOQ [Suspect]
     Active Substance: UPADACITINIB
     Indication: Rheumatoid arthritis
     Route: 048
     Dates: start: 20210721
  2. RINVOQ [Suspect]
     Active Substance: UPADACITINIB
     Route: 048
  3. PREDNISONE [Concomitant]
     Active Substance: PREDNISONE
     Indication: Product used for unknown indication

REACTIONS (9)
  - Basal cell carcinoma [Unknown]
  - Squamous cell carcinoma [Unknown]
  - Seizure [Unknown]
  - Skin disorder [Unknown]
  - Impaired healing [Unknown]
  - Myalgia [Unknown]
  - Gait disturbance [Unknown]
  - Walking aid user [Unknown]
  - Unevaluable event [Unknown]

NARRATIVE: CASE EVENT DATE: 20220301
